FAERS Safety Report 9834910 (Version 1)
Quarter: 2014Q1

REPORT INFORMATION
  Report Type: Spontaneous
  Country: US (occurrence: US)
  Receive Date: 20140122
  Receipt Date: 20140122
  Transmission Date: 20141002
  Serious: No
  Sender: FDA-Public Use
  Company Number: US-BAYER-2014-008077

PATIENT
  Age: 5 Year
  Sex: Male
  Weight: 22.22 kg

DRUGS (1)
  1. ALEVE CAPLET [Suspect]
     Dosage: UNK UNK, ONCE
     Route: 048
     Dates: start: 20140114, end: 20140114

REACTIONS (1)
  - Accidental exposure to product by child [None]
